FAERS Safety Report 10204387 (Version 1)
Quarter: 2014Q2

REPORT INFORMATION
  Report Type: Spontaneous
  Country: FR (occurrence: FR)
  Receive Date: 20140529
  Receipt Date: 20140529
  Transmission Date: 20141212
  Serious: Yes (Hospitalization)
  Sender: FDA-Public Use
  Company Number: FR-PFIZER INC-2014141545

PATIENT
  Age: 41 Year
  Sex: Female

DRUGS (6)
  1. ADVIL [Suspect]
     Indication: HEADACHE
     Dosage: 400 MG, SINGLE
     Route: 048
     Dates: start: 20140326, end: 20140326
  2. ADVIL [Suspect]
     Dosage: 400 MG, SINGLE
     Route: 048
     Dates: start: 20140403, end: 20140403
  3. LUTERAN [Concomitant]
  4. ZOPICLONE [Concomitant]
  5. ALPRAZOLAM [Concomitant]
  6. FLUOXETINE [Concomitant]

REACTIONS (1)
  - Stevens-Johnson syndrome [Recovered/Resolved]
